FAERS Safety Report 13896207 (Version 1)
Quarter: 2017Q3

REPORT INFORMATION
  Report Type: Spontaneous
  Country: US (occurrence: US)
  Receive Date: 20170823
  Receipt Date: 20170823
  Transmission Date: 20171127
  Serious: No
  Sender: FDA-Public Use
  Company Number: US-THE MEDICINES COMPANY-US-MDCO-17-00289

PATIENT
  Sex: Female

DRUGS (1)
  1. ORBACTIV [Suspect]
     Active Substance: ORITAVANCIN
     Indication: TISSUE EXPANSION PROCEDURE
     Dosage: NOT REPORTED
     Route: 041

REACTIONS (3)
  - Off label use [Unknown]
  - Urticaria [Unknown]
  - Wrong technique in product usage process [Unknown]
